FAERS Safety Report 4499706-8 (Version None)
Quarter: 2004Q4

REPORT INFORMATION
  Report Type: 
  Country: None (occurrence: None)
  Receive Date: 20041108
  Receipt Date: 20041025
  Transmission Date: 20050328
  Serious: Yes (Hospitalization)
  Sender: FDA-Public Use
  Company Number: 2004084905

PATIENT
  Age: 54 Year
  Sex: Male

DRUGS (3)
  1. ZELDOX (CAPSULES)(ZIPRASIDONE) [Suspect]
     Indication: SCHIZOPHRENIA, RESIDUAL TYPE
     Dosage: 80 MG, ORAL
     Route: 048
     Dates: start: 20020618, end: 20020805
  2. CITALOPRAM HYDROBROMIDE [Concomitant]
  3. URTICA EXTRACT (URTICA EXTRACT) [Concomitant]

REACTIONS (2)
  - PARKINSONISM [None]
  - RESTLESSNESS [None]
